FAERS Safety Report 7734148-0 (Version None)
Quarter: 2011Q3

REPORT INFORMATION
  Report Type: 
  Country: None (occurrence: None)
  Receive Date: 20110907
  Receipt Date: 20110824
  Transmission Date: 20111222
  Serious: Yes (Hospitalization)
  Sender: FDA-Public Use
  Company Number: JP-CELGENEUS-087-21660-11083089

PATIENT
  Sex: Male
  Weight: 57 kg

DRUGS (2)
  1. TS-1 [Suspect]
     Indication: GASTRIC CANCER
     Dosage: 120 MILLIGRAM
     Route: 048
     Dates: start: 20110812
  2. ABRAXANE [Suspect]
     Indication: GASTRIC CANCER
     Dosage: 293 MILLIGRAM
     Route: 050
     Dates: start: 20110812

REACTIONS (2)
  - NAUSEA [None]
  - DECREASED APPETITE [None]
